FAERS Safety Report 26077541 (Version 1)
Quarter: 2025Q4

REPORT INFORMATION
  Report Type: Spontaneous
  Country: US (occurrence: US)
  Receive Date: 20251121
  Receipt Date: 20251121
  Transmission Date: 20260117
  Serious: No
  Sender: NOVO NORDISK
  Company Number: US-NOVOPROD-1493512

PATIENT
  Sex: Female

DRUGS (2)
  1. TRESIBA [Suspect]
     Active Substance: INSULIN DEGLUDEC
     Dosage: 18 IU, QD
  2. TRESIBA [Suspect]
     Active Substance: INSULIN DEGLUDEC
     Indication: Product used for unknown indication
     Dosage: 20 IU, QD
     Dates: start: 20250729

REACTIONS (4)
  - Unevaluable event [Unknown]
  - Blood glucose decreased [Recovered/Resolved]
  - Palpitations [Unknown]
  - Insomnia [Unknown]
